FAERS Safety Report 14322940 (Version 1)
Quarter: 2017Q4

REPORT INFORMATION
  Report Type: Spontaneous
  Country: US (occurrence: US)
  Receive Date: 20171226
  Receipt Date: 20171226
  Transmission Date: 20180321
  Serious: Yes (Death)
  Sender: FDA-Public Use
  Company Number: US-INSYS THERAPEUTICS, INC-INS201712-000696

PATIENT
  Age: 41 Year
  Sex: Female

DRUGS (15)
  1. CARBON MONOXIDE [Suspect]
     Active Substance: CARBON MONOXIDE
     Indication: PRODUCT USED FOR UNKNOWN INDICATION
     Route: 051
     Dates: start: 2016
  2. ALCOHOL. [Suspect]
     Active Substance: ALCOHOL
     Route: 051
     Dates: start: 2016
  3. FENTANYL. [Suspect]
     Active Substance: FENTANYL
     Indication: PRODUCT USED FOR UNKNOWN INDICATION
     Route: 051
     Dates: start: 2016
  4. FLUORINATED HYDROCARBON [Suspect]
     Active Substance: UNSPECIFIED INGREDIENT
     Indication: PRODUCT USED FOR UNKNOWN INDICATION
     Route: 051
     Dates: start: 2016
  5. FLUORINATED HYDROCARBON [Suspect]
     Active Substance: UNSPECIFIED INGREDIENT
     Route: 048
     Dates: start: 2016
  6. OXYMORPHONE [Suspect]
     Active Substance: OXYMORPHONE
     Indication: PRODUCT USED FOR UNKNOWN INDICATION
     Route: 048
     Dates: start: 2016
  7. FENTANYL. [Suspect]
     Active Substance: FENTANYL
     Route: 048
     Dates: start: 2016
  8. OXYMORPHONE [Suspect]
     Active Substance: OXYMORPHONE
     Route: 051
     Dates: start: 2016
  9. FENTANYL. [Suspect]
     Active Substance: FENTANYL
     Dates: start: 2016
  10. ALCOHOL. [Suspect]
     Active Substance: ALCOHOL
     Indication: PRODUCT USED FOR UNKNOWN INDICATION
     Route: 048
     Dates: start: 2016
  11. ALCOHOL. [Suspect]
     Active Substance: ALCOHOL
     Dates: start: 2016
  12. FLUORINATED HYDROCARBON [Suspect]
     Active Substance: UNSPECIFIED INGREDIENT
     Dates: start: 2016
  13. CARBON MONOXIDE [Suspect]
     Active Substance: CARBON MONOXIDE
     Route: 048
     Dates: start: 2016
  14. OXYMORPHONE [Suspect]
     Active Substance: OXYMORPHONE
     Dates: start: 2016
  15. CARBON MONOXIDE [Suspect]
     Active Substance: CARBON MONOXIDE
     Dates: start: 2016

REACTIONS (4)
  - Exposure via ingestion [None]
  - Cardio-respiratory arrest [Fatal]
  - Incorrect route of drug administration [Unknown]
  - Exposure via inhalation [None]

NARRATIVE: CASE EVENT DATE: 2016
